FAERS Safety Report 16040890 (Version 2)
Quarter: 2019Q1

REPORT INFORMATION
  Report Type: Report from Study
  Country: IN (occurrence: IN)
  Receive Date: 20190306
  Receipt Date: 20190319
  Transmission Date: 20190418
  Serious: Yes (Hospitalization, Other)
  Sender: FDA-Public Use
  Company Number: IN-AMGEN-INDSP2019032878

PATIENT
  Age: 47 Year
  Sex: Male

DRUGS (2)
  1. REPATHA [Suspect]
     Active Substance: EVOLOCUMAB
     Indication: HYPERCHOLESTEROLAEMIA
     Dosage: UNK, Q2WK
     Route: 058
     Dates: start: 20190129
  2. REPATHA [Suspect]
     Active Substance: EVOLOCUMAB
     Indication: DYSLIPIDAEMIA

REACTIONS (6)
  - Influenza like illness [Unknown]
  - Syncope [Recovered/Resolved]
  - Hyperchlorhydria [Unknown]
  - Hypotension [Unknown]
  - Insomnia [Recovered/Resolved]
  - Low density lipoprotein decreased [Unknown]

NARRATIVE: CASE EVENT DATE: 20190213
